FAERS Safety Report 15743020 (Version 2)
Quarter: 2019Q1

REPORT INFORMATION
  Report Type: Report from Study
  Country: None (occurrence: US)
  Receive Date: 20181220
  Receipt Date: 20190314
  Transmission Date: 20190417
  Serious: Yes (Hospitalization, Other)
  Sender: FDA-Public Use
  Company Number: US-ABBVIE-18K-163-2369389-00

PATIENT
  Sex: Male

DRUGS (4)
  1. HUMIRA [Suspect]
     Active Substance: ADALIMUMAB
     Indication: COLITIS ULCERATIVE
     Dosage: DAY 15
     Route: 058
     Dates: start: 20180607, end: 20180607
  2. HUMIRA [Suspect]
     Active Substance: ADALIMUMAB
     Route: 058
     Dates: start: 20180906, end: 20190222
  3. HUMIRA [Suspect]
     Active Substance: ADALIMUMAB
     Indication: HIDRADENITIS
     Route: 058
     Dates: start: 20180621, end: 20180823
  4. HUMIRA [Suspect]
     Active Substance: ADALIMUMAB
     Indication: CROHN^S DISEASE
     Dosage: DAY 1
     Route: 058
     Dates: start: 20180524, end: 20180524

REACTIONS (24)
  - Decreased appetite [Unknown]
  - Fatigue [Unknown]
  - Tension headache [Unknown]
  - Rectal haemorrhage [Not Recovered/Not Resolved]
  - Diarrhoea [Recovering/Resolving]
  - Anaemia [Unknown]
  - Haematochezia [Not Recovered/Not Resolved]
  - Flatulence [Unknown]
  - Abdominal hernia [Unknown]
  - Intestinal haemorrhage [Not Recovered/Not Resolved]
  - Constipation [Recovering/Resolving]
  - Seasonal allergy [Not Recovered/Not Resolved]
  - Abdominal pain [Not Recovered/Not Resolved]
  - Mucous stools [Recovering/Resolving]
  - Feeling cold [Unknown]
  - Abdominal discomfort [Unknown]
  - Eczema [Not Recovered/Not Resolved]
  - Crohn^s disease [Unknown]
  - Hip surgery [Unknown]
  - Frequent bowel movements [Not Recovered/Not Resolved]
  - Abnormal faeces [Unknown]
  - Musculoskeletal stiffness [Unknown]
  - Joint stiffness [Unknown]
  - Insomnia [Not Recovered/Not Resolved]

NARRATIVE: CASE EVENT DATE: 2018
